FAERS Safety Report 14099753 (Version 1)
Quarter: 2017Q4

REPORT INFORMATION
  Report Type: Spontaneous
  Country: IT (occurrence: IT)
  Receive Date: 20171017
  Receipt Date: 20171017
  Transmission Date: 20180321
  Serious: Yes (Other)
  Sender: FDA-Public Use
  Company Number: IT-SA-2017SA198730

PATIENT
  Age: 76 Year
  Sex: Male

DRUGS (10)
  1. PLAVIX [Suspect]
     Active Substance: CLOPIDOGREL BISULFATE
     Indication: THROMBOSIS PROPHYLAXIS
     Route: 048
     Dates: start: 20170101, end: 20170817
  2. KETOPROFEN. [Concomitant]
     Active Substance: KETOPROFEN
     Route: 065
  3. SIMESTAT [Concomitant]
     Active Substance: ROSUVASTATIN CALCIUM
  4. FOLINA [Concomitant]
     Active Substance: FOLIC ACID
  5. CARDICOR [Concomitant]
     Active Substance: BISOPROLOL
  6. XARELTO [Suspect]
     Active Substance: RIVAROXABAN
     Indication: THROMBOSIS PROPHYLAXIS
     Route: 048
     Dates: start: 20170101, end: 20170817
  7. AMIODARONE [Concomitant]
     Active Substance: AMIODARONE
  8. AMLODIPINE [Concomitant]
     Active Substance: AMLODIPINE BESYLATE
     Route: 065
  9. RANEXA [Concomitant]
     Active Substance: RANOLAZINE
  10. ZETIA [Concomitant]
     Active Substance: EZETIMIBE

REACTIONS (2)
  - Faeces discoloured [Recovering/Resolving]
  - Anaemia [Recovering/Resolving]

NARRATIVE: CASE EVENT DATE: 20170817
